FAERS Safety Report 13144708 (Version 4)
Quarter: 2017Q3

REPORT INFORMATION
  Report Type: Report from Study
  Country: CO (occurrence: CO)
  Receive Date: 20170124
  Receipt Date: 20170824
  Transmission Date: 20171127
  Serious: Yes (Other)
  Sender: FDA-Public Use
  Company Number: CO-SA-2016SA223700

PATIENT
  Age: 19 Year
  Sex: Male
  Weight: 68 kg

DRUGS (1)
  1. LEMTRADA [Suspect]
     Active Substance: ALEMTUZUMAB
     Indication: MULTIPLE SCLEROSIS
     Dosage: FREQUENCY: 1 AMPOULE DAILY FOR 5 DAYS
     Route: 041
     Dates: start: 20160829, end: 20160902

REACTIONS (6)
  - Monocyte percentage increased [Recovered/Resolved]
  - Lymphopenia [Recovered/Resolved]
  - Urine uric acid increased [Recovered/Resolved]
  - Eosinophilia [Recovered/Resolved]
  - Leukopenia [Recovered/Resolved]
  - Neutrophil percentage increased [Recovered/Resolved]

NARRATIVE: CASE EVENT DATE: 20161129
